FAERS Safety Report 9290368 (Version 1)
Quarter: 2013Q2

REPORT INFORMATION
  Report Type: Spontaneous
  Country: US (occurrence: US)
  Receive Date: 20130515
  Receipt Date: 20130515
  Transmission Date: 20140414
  Serious: Yes (Other)
  Sender: FDA-Public Use
  Company Number: US-PFIZER INC-2013148105

PATIENT
  Age: 62 Year
  Sex: Female
  Weight: 85.26 kg

DRUGS (2)
  1. DEPO-MEDROL [Suspect]
     Indication: MENISCUS INJURY
     Dosage: 40 MG, SINGLE
     Dates: start: 20130327, end: 20130327
  2. VERAPAMIL HCL [Suspect]
     Indication: HYPERTENSION
     Dosage: 240 MG, 1X/DAY

REACTIONS (4)
  - Hypertension [Not Recovered/Not Resolved]
  - Blood potassium decreased [Recovering/Resolving]
  - Muscle spasms [Recovering/Resolving]
  - Drug effect incomplete [Unknown]
